FAERS Safety Report 13339311 (Version 1)
Quarter: 2017Q1

REPORT INFORMATION
  Report Type: Report from Study
  Country: BR (occurrence: BR)
  Receive Date: 20170315
  Receipt Date: 20170315
  Transmission Date: 20170428
  Serious: Yes (Other)
  Sender: FDA-Public Use
  Company Number: PHHY2017BR038758

PATIENT
  Sex: Female

DRUGS (2)
  1. EXELON PATCH [Suspect]
     Active Substance: RIVASTIGMINE
     Indication: HALLUCINATION
  2. EXELON PATCH [Suspect]
     Active Substance: RIVASTIGMINE
     Indication: MEMORY IMPAIRMENT
     Dosage: 9.5 MG, QD (PATCH 10 CM2)
     Route: 062

REACTIONS (6)
  - Confusional state [Unknown]
  - Abasia [Unknown]
  - Dementia Alzheimer^s type [Unknown]
  - Movement disorder [Unknown]
  - Memory impairment [Unknown]
  - Product use issue [Unknown]
